FAERS Safety Report 23101289 (Version 1)
Quarter: 2023Q4

REPORT INFORMATION
  Report Type: Spontaneous
  Country: CA (occurrence: CA)
  Receive Date: 20231024
  Receipt Date: 20231024
  Transmission Date: 20240110
  Serious: Yes (Other)
  Sender: FDA-Public Use
  Company Number: CA-PFIZER INC-202300337450

PATIENT
  Age: 30 Year
  Sex: Female

DRUGS (2)
  1. PAXLOVID [Suspect]
     Active Substance: NIRMATRELVIR\RITONAVIR
     Indication: COVID-19 treatment
     Dosage: [NIRMATRELVIR 300 MG]/[RITONAVIR 100 MG]; 2X/DAY
     Route: 048
  2. KYLEENA [Concomitant]
     Active Substance: LEVONORGESTREL
     Dosage: UNK

REACTIONS (9)
  - Ageusia [Recovering/Resolving]
  - COVID-19 [Recovering/Resolving]
  - Disease recurrence [Recovering/Resolving]
  - Epistaxis [Recovering/Resolving]
  - Haemoptysis [Recovering/Resolving]
  - Nasal mucosal discolouration [Recovering/Resolving]
  - Rhinorrhoea [Recovering/Resolving]
  - Sinus congestion [Recovering/Resolving]
  - Sputum discoloured [Recovering/Resolving]
